FAERS Safety Report 5201409-9 (Version None)
Quarter: 2007Q1

REPORT INFORMATION
  Report Type: 
  Country: None (occurrence: None)
  Receive Date: 20070108
  Receipt Date: 20061211
  Transmission Date: 20070707
  Serious: Yes (Hospitalization, Other)
  Sender: FDA-Public Use
  Company Number: FR-PFIZER INC-2006153521

PATIENT
  Age: 64 Year
  Sex: Male

DRUGS (7)
  1. SOLU-MEDROL [Suspect]
     Dates: start: 20060227, end: 20060227
  2. AUGMENTIN '125' [Suspect]
     Dates: start: 20060222, end: 20060227
  3. CEFTRIAXONE [Suspect]
     Dates: start: 20060217, end: 20060222
  4. CYCLOPHOSPHAMIDE [Concomitant]
     Dates: start: 20060227, end: 20060227
  5. RITUXIMAB [Concomitant]
     Dates: start: 20060227, end: 20060227
  6. FLUDARABINE PHOSPHATE [Concomitant]
  7. ONDANSETRON [Concomitant]

REACTIONS (3)
  - FACE OEDEMA [None]
  - OEDEMA [None]
  - RASH [None]
